FAERS Safety Report 13237018 (Version 1)
Quarter: 2017Q1

REPORT INFORMATION
  Report Type: Other
  Country: IR (occurrence: IR)
  Receive Date: 20170215
  Receipt Date: 20170215
  Transmission Date: 20170428
  Serious: Yes (Hospitalization)
  Sender: FDA-Public Use
  Company Number: IR-B. BRAUN MEDICAL INC.-1063149

PATIENT
  Age: 43 Year
  Sex: Female

DRUGS (1)
  1. METRONIDAZOLE. [Suspect]
     Active Substance: METRONIDAZOLE
     Indication: HELICOBACTER INFECTION

REACTIONS (4)
  - Nervous system disorder [Recovering/Resolving]
  - Deafness [Recovering/Resolving]
  - Neurotoxicity [Recovering/Resolving]
  - Encephalopathy [None]
